APPROVED DRUG PRODUCT: OMEPRAZOLE
Active Ingredient: OMEPRAZOLE
Strength: 40MG
Dosage Form/Route: CAPSULE, DELAYED REL PELLETS;ORAL
Application: A203481 | Product #003 | TE Code: AB
Applicant: BRECKENRIDGE PHARMACEUTICAL INC
Approved: Jul 3, 2017 | RLD: No | RS: No | Type: RX